FAERS Safety Report 12710546 (Version 1)
Quarter: 2016Q3

REPORT INFORMATION
  Report Type: Spontaneous
  Country: US (occurrence: US)
  Receive Date: 20160902
  Receipt Date: 20160902
  Transmission Date: 20161109
  Serious: Yes (Other)
  Sender: FDA-Public Use
  Company Number: US-TEVA-689372ACC

PATIENT
  Sex: Female

DRUGS (1)
  1. PARAGARD T 380A [Suspect]
     Active Substance: COPPER
     Indication: CONTRACEPTION
     Dates: start: 2013

REACTIONS (6)
  - Emotional disorder [Unknown]
  - Embedded device [Recovered/Resolved]
  - Dysmenorrhoea [Unknown]
  - Pain [Unknown]
  - Impaired work ability [Unknown]
  - Vaginal haemorrhage [Unknown]
